FAERS Safety Report 12126995 (Version 2)
Quarter: 2016Q1

REPORT INFORMATION
  Report Type: Spontaneous
  Country: US (occurrence: US)
  Receive Date: 20160229
  Receipt Date: 20160303
  Transmission Date: 20160526
  Serious: Yes (Other)
  Sender: FDA-Public Use
  Company Number: US-JNJFOC-20160217307

PATIENT
  Sex: Female
  Weight: 104.33 kg

DRUGS (9)
  1. BENADRYL [Suspect]
     Active Substance: DIPHENHYDRAMINE HYDROCHLORIDE
     Indication: HYPERSENSITIVITY
     Dosage: TAKING FOR YEARS
     Route: 065
  2. TURMERIC [Suspect]
     Active Substance: TURMERIC
     Indication: PRODUCT USED FOR UNKNOWN INDICATION
     Dosage: STARTED TAKING 3 MONTHS AGO.
     Route: 065
  3. PROBIOTICS NOS [Suspect]
     Active Substance: PROBIOTICS NOS
     Indication: RHEUMATOID ARTHRITIS
     Dosage: STARTED TAKING ABOUT TWO MONTHS AGO.
     Route: 065
  4. DULOXETINE. [Suspect]
     Active Substance: DULOXETINE
     Indication: FIBROMYALGIA
     Dosage: STARTED TAKING 4 MONTHS AGO.
     Route: 065
  5. ESCITALOPRAM [Suspect]
     Active Substance: ESCITALOPRAM OXALATE
     Indication: PRODUCT USED FOR UNKNOWN INDICATION
     Route: 065
  6. GINGER. [Suspect]
     Active Substance: GINGER
     Indication: DYSPEPSIA
     Dosage: STARTED TAKING 3 MONTHS AGO.
     Route: 065
  7. ALL OTHER THERAPEUTIC PRODUCTS [Concomitant]
     Active Substance: UNSPECIFIED INGREDIENT
     Indication: PRODUCT USED FOR UNKNOWN INDICATION
     Route: 065
  8. LYRICA [Suspect]
     Active Substance: PREGABALIN
     Indication: FIBROMYALGIA
     Dosage: STARTED TAKING 4 MONTHS AGO.
     Route: 065
  9. CELEXA [Suspect]
     Active Substance: CITALOPRAM HYDROBROMIDE
     Indication: FIBROMYALGIA
     Dosage: STARTED TAKING 3 WEEKS AGO.
     Route: 065

REACTIONS (3)
  - Sinusitis [Unknown]
  - Bronchitis [Unknown]
  - Lower respiratory tract infection [Unknown]
